FAERS Safety Report 10108930 (Version 1)
Quarter: 2014Q2

REPORT INFORMATION
  Report Type: Spontaneous
  Country: US (occurrence: US)
  Receive Date: 20140425
  Receipt Date: 20140425
  Transmission Date: 20141212
  Serious: No
  Sender: FDA-Public Use
  Company Number: US-ENDO PHARMACEUTICALS INC.-MODA20140002

PATIENT
  Sex: Female

DRUGS (3)
  1. MODAFINIL TABLETS 200MG [Suspect]
     Route: 048
  2. MODAFINIL TABLETS [Concomitant]
     Indication: PRODUCT USED FOR UNKNOWN INDICATION
     Route: 048
     Dates: start: 201110
  3. MODAFINIL TABLETS [Concomitant]
     Route: 048

REACTIONS (1)
  - Drug effect decreased [Not Recovered/Not Resolved]
